FAERS Safety Report 5016482-0 (Version None)
Quarter: 2006Q2

REPORT INFORMATION
  Report Type: 
  Country: None (occurrence: None)
  Receive Date: 20060602
  Receipt Date: 20060524
  Transmission Date: 20061013
  Serious: Yes (Hospitalization)
  Sender: FDA-Public Use
  Company Number: PHEH2006US06904

PATIENT
  Age: 14 Year
  Sex: Female

DRUGS (5)
  1. EXJADE [Suspect]
     Dosage: 20 MG, QD
     Route: 048
     Dates: start: 20060126, end: 20060515
  2. ADVAIR DISKUS 100/50 [Concomitant]
  3. SINGULAIR [Concomitant]
  4. ALBUTEROL SULFATE AUTOHALER [Concomitant]
  5. FOLIC ACID [Concomitant]

REACTIONS (11)
  - ALANINE AMINOTRANSFERASE INCREASED [None]
  - ASPARTATE AMINOTRANSFERASE INCREASED [None]
  - BLOOD ALKALINE PHOSPHATASE INCREASED [None]
  - BLOOD BILIRUBIN INCREASED [None]
  - BLOOD LACTATE DEHYDROGENASE INCREASED [None]
  - CHEST PAIN [None]
  - CYTOMEGALOVIRUS ANTIBODY POSITIVE [None]
  - GAMMA-GLUTAMYLTRANSFERASE INCREASED [None]
  - LIVER FUNCTION TEST ABNORMAL [None]
  - PYREXIA [None]
  - ULTRASOUND LIVER ABNORMAL [None]
